FAERS Safety Report 9759792 (Version 1)
Quarter: 2013Q4

REPORT INFORMATION
  Report Type: Spontaneous
  Country: GB (occurrence: None)
  Receive Date: 20131212
  Receipt Date: 20131212
  Transmission Date: 20140711
  Serious: Yes (Other)
  Sender: FDA-Public Use
  Company Number: AUR-APL-2013-07484

PATIENT
  Sex: Male

DRUGS (2)
  1. FINASTERIDE (FINASTERIDE) [Suspect]
     Indication: PROSTATIC DISORDER
  2. BISOPROLOL (BISOPROLOL) [Suspect]
     Indication: PRODUCT USED FOR UNKNOWN INDICATION

REACTIONS (3)
  - Penile haemorrhage [None]
  - Penis disorder [None]
  - Tenderness [None]
